FAERS Safety Report 15153454 (Version 20)
Quarter: 2020Q3

REPORT INFORMATION
  Report Type: Spontaneous
  Country: FR (occurrence: FR)
  Receive Date: 20180717
  Receipt Date: 20190723
  Transmission Date: 20201105
  Serious: Yes (Other)
  Sender: FDA-Public Use
  Company Number: FR-MYLANLABS-2018M1050620

PATIENT
  Sex: Female
  Weight: 77 kg

DRUGS (91)
  1. AMOXICILLIN. [Suspect]
     Active Substance: AMOXICILLIN
     Indication: PRODUCT USED FOR UNKNOWN INDICATION
     Dosage: 3 GRAM, QD (1X/DAY)
     Route: 048
     Dates: start: 20170804, end: 20170811
  2. METFORMIN [Suspect]
     Active Substance: METFORMIN HYDROCHLORIDE
     Dosage: 850 MILLIGRAM, QD
     Route: 048
     Dates: start: 20180924
  3. LABETALOL HYDROCHLORIDE. [Suspect]
     Active Substance: LABETALOL HYDROCHLORIDE
     Indication: HYPERTENSION
     Dosage: 80 MILLIGRAM, QD
     Route: 065
     Dates: start: 20170516, end: 20170914
  4. POTASSIUM CHLORIDE. [Suspect]
     Active Substance: POTASSIUM CHLORIDE
     Indication: HYPOKALAEMIA
     Dosage: 3600 MILLIGRAM, QD
     Route: 065
     Dates: start: 20170804
  5. NICARDIPINE [Suspect]
     Active Substance: NICARDIPINE
     Dosage: 100 MILLIGRAM, QD
     Dates: start: 20170405
  6. FOLIC ACID. [Suspect]
     Active Substance: FOLIC ACID
     Indication: NORMOCHROMIC NORMOCYTIC ANAEMIA
     Dosage: 5 MILLIGRAM, QD
     Route: 065
     Dates: start: 20170224
  7. GLICLAZIDE [Suspect]
     Active Substance: GLICLAZIDE
     Indication: TYPE 2 DIABETES MELLITUS
     Dosage: 120 MILLIGRAM, QD
     Route: 065
     Dates: start: 20160930, end: 20170224
  8. FUROSEMIDE. [Suspect]
     Active Substance: FUROSEMIDE
     Dosage: 50 MILLIGRAM
     Route: 065
  9. LOXEN                              /00639802/ [Suspect]
     Active Substance: NICARDIPINE HYDROCHLORIDE
     Dosage: 1 DOSAGE FORM
     Route: 065
     Dates: start: 20170313, end: 20180405
  10. LAROXYL [Suspect]
     Active Substance: AMITRIPTYLINE HYDROCHLORIDE
     Indication: DIABETIC NEUROPATHY
     Dosage: 2 DOSAGE FORM, QD
     Route: 065
     Dates: start: 20160930
  11. FORLAX [Suspect]
     Active Substance: POLYETHYLENE GLYCOL 4000
     Dosage: 120 MILLIGRAM, QD
     Route: 065
     Dates: start: 20160930, end: 20170224
  12. FORLAX [Suspect]
     Active Substance: POLYETHYLENE GLYCOL 4000
     Dosage: 1 DOSAGE FORM, UNK
     Dates: start: 20160930, end: 20170224
  13. LANTUS [Suspect]
     Active Substance: INSULIN GLARGINE
     Dosage: 200 MG, UNK
     Route: 065
  14. CHLORPROMAZINE HYDROCHLORIDE. [Suspect]
     Active Substance: CHLORPROMAZINE HYDROCHLORIDE
     Indication: BIPOLAR I DISORDER
     Dosage: 25 MILLIGRAM, QD
     Dates: start: 20170720
  15. GABAPENTIN. [Suspect]
     Active Substance: GABAPENTIN
     Indication: DIABETIC NEUROPATHY
     Dosage: 80 MILLIGRAM, QD
     Route: 048
     Dates: start: 20160930
  16. FOLIC ACID. [Suspect]
     Active Substance: FOLIC ACID
     Dosage: UNK
  17. AMOXICILLIN. [Suspect]
     Active Substance: AMOXICILLIN
     Dosage: 1 GRAM, QD
     Route: 065
     Dates: start: 20170804
  18. AMOXICILLIN. [Suspect]
     Active Substance: AMOXICILLIN
     Dosage: 1 GRAM, QD
     Route: 065
     Dates: start: 20170811
  19. FUROSEMIDE. [Suspect]
     Active Substance: FUROSEMIDE
     Dosage: UNK
     Route: 065
  20. METHYLDOPA MSD [Suspect]
     Active Substance: METHYLDOPA
     Dosage: 500 MILLIGRAM, QD
     Route: 065
     Dates: start: 20170720
  21. LOXEN                              /00639802/ [Suspect]
     Active Substance: NICARDIPINE HYDROCHLORIDE
     Dosage: 50 MILLIGRAM
  22. DIFFU?K [Suspect]
     Active Substance: POTASSIUM CHLORIDE
     Dosage: 1200 MILLIGRAM, QD
     Route: 065
     Dates: start: 20170804
  23. TARDYFERON [Suspect]
     Active Substance: FERROUS SULFATE
     Indication: NORMOCHROMIC NORMOCYTIC ANAEMIA
     Dosage: 1 DOSAGE FORM, QD
     Route: 065
     Dates: start: 20170313
  24. FORLAX [Suspect]
     Active Substance: POLYETHYLENE GLYCOL 4000
     Indication: CONSTIPATION
     Dosage: 1 DOSAGE FORM, QD
     Route: 065
     Dates: start: 20160930, end: 20170405
  25. HUMALOG [Suspect]
     Active Substance: INSULIN LISPRO
     Dosage: 1 DOSAGE FORM, QD
     Route: 065
     Dates: start: 20170224
  26. AMITRIPTYLINE HYDROCHLORIDE. [Suspect]
     Active Substance: AMITRIPTYLINE HYDROCHLORIDE
     Indication: DIABETIC NEUROPATHY
     Dosage: 2 DOSAGE FORM, QD
     Route: 065
     Dates: start: 20160930
  27. FOLIC ACID. [Suspect]
     Active Substance: FOLIC ACID
     Indication: NORMOCHROMIC NORMOCYTIC ANAEMIA
     Dosage: 5 MILLIGRAM, QD
     Route: 065
     Dates: start: 20170313
  28. AMOXICILLIN SODIUM [Suspect]
     Active Substance: AMOXICILLIN SODIUM
     Indication: PRODUCT USED FOR UNKNOWN INDICATION
     Dosage: 3 GRAM, QD
     Route: 050
     Dates: start: 20170804, end: 20170811
  29. INSULIN PORCINE [Suspect]
     Active Substance: INSULIN PORK\INSULIN PURIFIED PORK
     Indication: TYPE 2 DIABETES MELLITUS
     Dosage: UNK
     Route: 065
     Dates: start: 20161230, end: 20170224
  30. NICARDIPINE [Suspect]
     Active Substance: NICARDIPINE
     Indication: HYPERTENSION
     Dosage: 50 MG, UNK
     Route: 065
  31. NICARDIPINE [Suspect]
     Active Substance: NICARDIPINE
     Dosage: UNK
     Route: 065
  32. FOLIC ACID. [Suspect]
     Active Substance: FOLIC ACID
     Dosage: 5 MILLIGRAM, QD
     Route: 065
  33. METFORMIN [Suspect]
     Active Substance: METFORMIN HYDROCHLORIDE
     Dosage: 1700 MILLIGRAM, QD
     Route: 048
     Dates: start: 20170804
  34. METHYLDOPA MSD [Suspect]
     Active Substance: METHYLDOPA
     Dosage: 500 MILLIGRAM, QD
     Route: 065
     Dates: start: 20170620
  35. METHYLDOPA MSD [Suspect]
     Active Substance: METHYLDOPA
     Dosage: 500 MILLIGRAM, QD
     Route: 048
  36. LOXEN                              /00639802/ [Suspect]
     Active Substance: NICARDIPINE HYDROCHLORIDE
     Dosage: UNK
  37. LOXEN L P [Suspect]
     Active Substance: NICARDIPINE HYDROCHLORIDE
     Dosage: 50 MILLIGRAM
     Route: 065
     Dates: start: 20170313, end: 20170405
  38. FOLINIC ACID [Suspect]
     Active Substance: LEUCOVORIN
     Indication: NORMOCHROMIC NORMOCYTIC ANAEMIA
     Dosage: 5 MILLIGRAM, QD
     Route: 065
     Dates: start: 20170224, end: 20170313
  39. LANTUS [Suspect]
     Active Substance: INSULIN GLARGINE
     Indication: TYPE 2 DIABETES MELLITUS
     Dosage: 20 MILLIGRAM, QD
     Route: 048
     Dates: start: 20170224
  40. LEVEMIR [Suspect]
     Active Substance: INSULIN DETEMIR
     Indication: TYPE 2 DIABETES MELLITUS
     Dosage: 10 INTERNATIONAL UNIT, QD
     Route: 065
     Dates: start: 20160930, end: 20170224
  41. POTASSIUM CHLORIDE. [Suspect]
     Active Substance: POTASSIUM CHLORIDE
     Dosage: 1200 MILLIGRAM, QD
     Route: 065
     Dates: start: 20170804
  42. DIFFU?K [Suspect]
     Active Substance: POTASSIUM CHLORIDE
     Indication: HYPOKALAEMIA
     Dosage: 3600 MG, QD (1X/DAY (3600 MG, QD, 1200 MG, QD (1200 MG, QD (2 TO 3 TIMES PER DAY))
     Route: 065
     Dates: start: 20170804
  43. DIFFU?K [Suspect]
     Active Substance: POTASSIUM CHLORIDE
     Dosage: UNK
     Route: 065
     Dates: start: 20170804
  44. FORLAX [Suspect]
     Active Substance: POLYETHYLENE GLYCOL 4000
     Dosage: 1 DOSAGE FORM, QD
     Dates: start: 20170313
  45. LOXEN L P [Suspect]
     Active Substance: NICARDIPINE HYDROCHLORIDE
     Indication: HYPERTENSION
     Dosage: 50MG FORME LP X2/J
     Route: 065
     Dates: start: 20170313, end: 20180405
  46. LOXEN L P [Suspect]
     Active Substance: NICARDIPINE HYDROCHLORIDE
     Dosage: 50 MG, UNK
     Route: 065
     Dates: start: 20180405
  47. FOLIC ACID. [Suspect]
     Active Substance: FOLIC ACID
     Dosage: 5 MG, QD
     Route: 065
     Dates: start: 20170224, end: 20170313
  48. LASIX [Suspect]
     Active Substance: FUROSEMIDE
     Indication: HYPERTENSION
     Dosage: 50 MG, UNK
     Route: 065
     Dates: start: 20170516
  49. INSULIN [Suspect]
     Active Substance: INSULIN NOS
     Indication: TYPE 2 DIABETES MELLITUS
     Dosage: UNK UNK,UNK
     Route: 065
     Dates: start: 20161230, end: 20170224
  50. TRAMADOL. [Suspect]
     Active Substance: TRAMADOL
     Dosage: 50 MILLIGRAM, QD
     Route: 065
     Dates: start: 20160930, end: 20170306
  51. TRAMADOL. [Suspect]
     Active Substance: TRAMADOL
     Dosage: 50 MILLIGRAM, QD
     Route: 065
     Dates: start: 20170306
  52. ARIPIPRAZOLE. [Suspect]
     Active Substance: ARIPIPRAZOLE
     Dosage: 10 MILLIGRAM, QD
     Route: 065
     Dates: start: 20160930, end: 20170224
  53. AMOXICILLIN. [Suspect]
     Active Substance: AMOXICILLIN
     Dosage: 1 GRAM, QD
     Route: 048
     Dates: start: 201708, end: 20180811
  54. RAMIPRIL. [Suspect]
     Active Substance: RAMIPRIL
     Dosage: 2.5 MILLIGRAM, QD
     Route: 065
     Dates: start: 20170224
  55. METFORMIN [Suspect]
     Active Substance: METFORMIN HYDROCHLORIDE
     Indication: TYPE 2 DIABETES MELLITUS
     Dosage: 850 MILLIGRAM, QD
     Route: 048
     Dates: start: 20170224
  56. INSULIN GLARGINE [Suspect]
     Active Substance: INSULIN GLARGINE
     Indication: TYPE 2 DIABETES MELLITUS
     Dosage: UNK
     Route: 065
     Dates: start: 20161230, end: 20170224
  57. METHYLDOPA MSD [Suspect]
     Active Substance: METHYLDOPA
     Indication: HYPERTENSION
     Dosage: 1500 MILLIGRAM, QD
     Route: 048
     Dates: start: 20170720
  58. LARGACTIL LEIRAS                   /00011902/ [Suspect]
     Active Substance: CHLORPROMAZINE HYDROCHLORIDE
     Indication: BIPOLAR I DISORDER
     Dosage: 0.5 DOSAGE FORM
     Route: 065
  59. LARGACTIL LEIRAS                   /00011902/ [Suspect]
     Active Substance: CHLORPROMAZINE HYDROCHLORIDE
     Dosage: 25 MILLIGRAM, QD
     Route: 048
     Dates: start: 20170720
  60. HUMALOG [Suspect]
     Active Substance: INSULIN LISPRO
     Indication: TYPE 2 DIABETES MELLITUS
     Dosage: 21 MICROGRAM/SQ. METER, QD
     Route: 065
     Dates: start: 20170224, end: 20170224
  61. FOLIC ACID. [Suspect]
     Active Substance: FOLIC ACID
     Dosage: 5 MILLIGRAM, QD
     Dates: start: 20170224, end: 20171014
  62. PROPRANOLOL HYDROCHLORIDE. [Suspect]
     Active Substance: PROPRANOLOL HYDROCHLORIDE
     Indication: HYPERTENSION
     Dosage: 80 MG, DRUG INTERVAL DOSAGE OF 1 DAY
     Route: 065
     Dates: start: 20170516
  63. TRAMADOL. [Suspect]
     Active Substance: TRAMADOL
     Indication: DIABETIC NEUROPATHY
     Dosage: 100 MILLIGRAM, QD
     Route: 065
     Dates: start: 20160930, end: 20170306
  64. FOLIC ACID. [Suspect]
     Active Substance: FOLIC ACID
     Dosage: 5 MILLIGRAM, QD
     Route: 065
     Dates: start: 20170313
  65. GLICLAZIDE [Suspect]
     Active Substance: GLICLAZIDE
     Dosage: 120 MILLIGRAM, QD
     Route: 065
     Dates: start: 20170224
  66. AMOXICILLIN. [Suspect]
     Active Substance: AMOXICILLIN
     Dosage: UNK
  67. AMOXICILLIN. [Suspect]
     Active Substance: AMOXICILLIN
     Dosage: 1 MILLIGRAM, QD
     Dates: start: 201708, end: 20180811
  68. RAMIPRIL. [Suspect]
     Active Substance: RAMIPRIL
     Dosage: 2.5 MILLIGRAM, QD
     Route: 065
     Dates: start: 20160930, end: 20170224
  69. FUROSEMIDE. [Suspect]
     Active Substance: FUROSEMIDE
     Indication: HYPERTENSION
     Dosage: 40 MILLIGRAM,UNK
     Route: 065
     Dates: start: 20170516
  70. METHYLDOPA MSD [Suspect]
     Active Substance: METHYLDOPA
     Dosage: 15000 MILLIGRAM, QD
     Route: 048
     Dates: start: 20170720
  71. LARGACTIL LEIRAS                   /00011902/ [Suspect]
     Active Substance: CHLORPROMAZINE HYDROCHLORIDE
     Dosage: 1 DOSAGE FORM
     Route: 065
  72. LOXEN                              /00639802/ [Suspect]
     Active Substance: NICARDIPINE HYDROCHLORIDE
     Indication: HYPERTENSION
     Dosage: 50 MG, QD
     Route: 065
     Dates: start: 20170313, end: 20170405
  73. LOXEN L P [Suspect]
     Active Substance: NICARDIPINE HYDROCHLORIDE
     Dosage: 1 DOSAGE FORM
     Route: 065
     Dates: start: 20170313, end: 20180405
  74. FOLINIC ACID [Suspect]
     Active Substance: LEUCOVORIN
     Dosage: 5 MG, QD
     Route: 065
     Dates: start: 20170313
  75. NICOPATCH [Suspect]
     Active Substance: NICOTINE
     Indication: EX-TOBACCO USER
     Dosage: 7 MILLIGRAM, QD
     Route: 065
     Dates: start: 20170224, end: 20170516
  76. LASIX [Suspect]
     Active Substance: FUROSEMIDE
     Dosage: 40 MILLIGRAM, QD
     Route: 065
     Dates: start: 20170516, end: 20170914
  77. GABAPENTIN. [Suspect]
     Active Substance: GABAPENTIN
     Dosage: 400 MILLIGRAM, QD
     Route: 048
     Dates: start: 20160930
  78. GABAPENTIN. [Suspect]
     Active Substance: GABAPENTIN
     Dosage: 800 MILLIGRAM, QD
     Route: 048
     Dates: start: 20160930
  79. RAMIPRIL. [Suspect]
     Active Substance: RAMIPRIL
     Indication: HYPERTENSION
     Dosage: 2.5 MILLIGRAM, QD ( 1X/DAY(21 WEEKS 1 DAY))
     Route: 048
     Dates: start: 20160930, end: 20170224
  80. METFORMIN [Suspect]
     Active Substance: METFORMIN HYDROCHLORIDE
     Dosage: 850 MILLIGRAM, QD
     Route: 065
     Dates: start: 20160930, end: 20170224
  81. METFORMIN [Suspect]
     Active Substance: METFORMIN HYDROCHLORIDE
     Dosage: 1700 MILLIGRAM, QD
     Route: 048
     Dates: start: 20160930, end: 20170224
  82. METHYLDOPA MSD [Suspect]
     Active Substance: METHYLDOPA
     Dosage: 1500 MILLIGRAM, QD
     Route: 048
  83. FORLAX [Suspect]
     Active Substance: POLYETHYLENE GLYCOL 4000
     Indication: NORMOCHROMIC NORMOCYTIC ANAEMIA
     Dosage: 1 DOSAGE FORM, QD
     Route: 065
     Dates: start: 20170405
  84. FORLAX [Suspect]
     Active Substance: POLYETHYLENE GLYCOL 4000
     Dosage: 1 DOSAGE FORM, QD
     Route: 065
     Dates: start: 20170224
  85. LOXEN L P [Suspect]
     Active Substance: NICARDIPINE HYDROCHLORIDE
     Dosage: 100 MILLIGRAM, QD
     Route: 064
     Dates: start: 20180405
  86. HUMALOG [Suspect]
     Active Substance: INSULIN LISPRO
     Dosage: 7 MICROGRAM/SQ. METER, QD
     Route: 065
     Dates: start: 20170224
  87. LANTUS [Suspect]
     Active Substance: INSULIN GLARGINE
     Dosage: 20 INTERNATIONAL UNIT, QD
     Route: 065
     Dates: start: 20170224, end: 20170914
  88. NICOPATCH [Suspect]
     Active Substance: NICOTINE
     Indication: SMOKING CESSATION THERAPY
     Dosage: 7 MILLIGRAM, QD
     Route: 065
     Dates: start: 20170516
  89. INSULIN LISPRO [Suspect]
     Active Substance: INSULIN LISPRO
     Indication: TYPE 2 DIABETES MELLITUS
     Dosage: 21 MICROGRAM/SQ. METER, QD
     Route: 065
     Dates: start: 20170224, end: 20170224
  90. FERROUS SULFATE. [Suspect]
     Active Substance: FERROUS SULFATE
     Indication: NORMOCHROMIC NORMOCYTIC ANAEMIA
     Dosage: 1 DOSAGE FORM, QD
     Route: 065
     Dates: start: 20170313
  91. NICARDIPINE [Suspect]
     Active Substance: NICARDIPINE
     Dosage: 1 DOSAGE FORM
     Route: 065
     Dates: start: 20170313, end: 20180405

REACTIONS (5)
  - Neutropenia [Not Recovered/Not Resolved]
  - Maternal exposure during pregnancy [Recovered/Resolved]
  - Foetal disorder [Unknown]
  - Premature delivery [Recovered/Resolved]
  - Low birth weight baby [Unknown]

NARRATIVE: CASE EVENT DATE: 20170914
